FAERS Safety Report 18336839 (Version 2)
Quarter: 2020Q4

REPORT INFORMATION
  Report Type: Spontaneous
  Country: US (occurrence: US)
  Receive Date: 20201001
  Receipt Date: 20201030
  Transmission Date: 20210113
  Serious: Yes (Other)
  Sender: FDA-Public Use
  Company Number: US-LEXICON PHARMACEUTICALS, INC-20-1606-00810

PATIENT
  Age: 76 Year
  Sex: Female

DRUGS (2)
  1. XERMELO [Suspect]
     Active Substance: TELOTRISTAT ETHYL
     Dosage: SHE HASN^T BEEN TAKING HER MEDICATION LIKE SHE HAS SUPPOSED TO
     Route: 048
  2. XERMELO [Suspect]
     Active Substance: TELOTRISTAT ETHYL
     Indication: NEUROENDOCRINE TUMOUR
     Dates: start: 20190111

REACTIONS (3)
  - Nephrolithiasis [Unknown]
  - Renal disorder [Unknown]
  - Treatment noncompliance [Unknown]
